FAERS Safety Report 8362531-1 (Version None)
Quarter: 2012Q2

REPORT INFORMATION
  Report Type: 
  Country: None (occurrence: None)
  Receive Date: 20120516
  Receipt Date: 20120507
  Transmission Date: 20120825
  Serious: Yes (Other)
  Sender: FDA-Public Use
  Company Number: US-BRISTOL-MYERS SQUIBB COMPANY-16575722

PATIENT
  Sex: Female

DRUGS (1)
  1. ORENCIA [Suspect]
     Dosage: RESTARTED ON 1MAY12 VIAL
     Route: 042

REACTIONS (2)
  - ARTHROPATHY [None]
  - OEDEMA PERIPHERAL [None]
